FAERS Safety Report 9201601 (Version 1)
Quarter: 2013Q1

REPORT INFORMATION
  Report Type: Spontaneous
  Country: US (occurrence: None)
  Receive Date: 20130327
  Receipt Date: 20130327
  Transmission Date: 20140127
  Serious: Yes (Other)
  Sender: FDA-Public Use
  Company Number: MERCK1212USA006543

PATIENT
  Age: 55 Year
  Sex: Male

DRUGS (1)
  1. BCG LIVE [Suspect]
     Dosage: INTRAVESICAL

REACTIONS (3)
  - Peripheral sensorimotor neuropathy [None]
  - Vasculitis [None]
  - Arthritis [None]
